FAERS Safety Report 13639205 (Version 1)
Quarter: 2017Q2

REPORT INFORMATION
  Report Type: Spontaneous
  Country: US (occurrence: US)
  Receive Date: 20170609
  Receipt Date: 20170609
  Transmission Date: 20170830
  Serious: Yes (Life-Threatening)
  Sender: FDA-Public Use
  Company Number: US-ROCHE-1462300

PATIENT
  Sex: Male

DRUGS (4)
  1. KLONOPIN [Suspect]
     Active Substance: CLONAZEPAM
     Indication: PANIC ATTACK
     Route: 065
  2. KLONOPIN [Suspect]
     Active Substance: CLONAZEPAM
     Indication: ANXIETY
  3. CLONAZEPAM. [Suspect]
     Active Substance: CLONAZEPAM
     Indication: ANXIETY
     Route: 065
  4. CLONAZEPAM. [Suspect]
     Active Substance: CLONAZEPAM
     Indication: PANIC ATTACK

REACTIONS (2)
  - Drug ineffective [Unknown]
  - Suicidal ideation [Unknown]
